FAERS Safety Report 5246541-9 (Version None)
Quarter: 2007Q1

REPORT INFORMATION
  Report Type: 
  Country: None (occurrence: None)
  Receive Date: 20070226
  Receipt Date: 20070213
  Transmission Date: 20070707
  Serious: Yes (Hospitalization, Congenital Anomaly)
  Sender: FDA-Public Use
  Company Number: FRWYE651013FEB07

PATIENT
  Sex: Male

DRUGS (1)
  1. ENBREL [Suspect]
     Indication: DRUG USE FOR UNKNOWN INDICATION
     Dosage: 25 MG 2 TIMES FOR THE FIRST FIFTEEN DAYS OF PREGNANCY
     Route: 064
     Dates: start: 20060815, end: 20060830

REACTIONS (1)
  - TALIPES [None]
